FAERS Safety Report 5809196-8 (Version None)
Quarter: 2008Q3

REPORT INFORMATION
  Report Type: 
  Country: None (occurrence: None)
  Receive Date: 20080714
  Receipt Date: 20080702
  Transmission Date: 20090109
  Serious: Yes (Other)
  Sender: FDA-Public Use
  Company Number: US-PFIZER INC-2008055323

PATIENT
  Sex: Female
  Weight: 56.7 kg

DRUGS (2)
  1. SUTENT [Suspect]
     Indication: METASTATIC RENAL CELL CARCINOMA
  2. ANTIHYPERTENSIVES [Concomitant]

REACTIONS (9)
  - BURNING MOUTH SYNDROME [None]
  - HAEMORRHAGE [None]
  - LETHARGY [None]
  - NAUSEA [None]
  - ORAL PAIN [None]
  - PLATELET COUNT DECREASED [None]
  - RED BLOOD CELL COUNT DECREASED [None]
  - SOMNOLENCE [None]
  - WHITE BLOOD CELL COUNT DECREASED [None]
